FAERS Safety Report 8256343-7 (Version None)
Quarter: 2012Q2

REPORT INFORMATION
  Report Type: 
  Country: None (occurrence: None)
  Receive Date: 20120403
  Receipt Date: 20120326
  Transmission Date: 20120825
  Serious: Yes (Hospitalization)
  Sender: FDA-Public Use
  Company Number: US-BAYER-2012-030215

PATIENT
  Age: 32 Year
  Sex: Female

DRUGS (9)
  1. NAPROXEN [Concomitant]
     Dosage: 500 MG, BID
     Dates: start: 20080702
  2. MEDROL [Concomitant]
     Dosage: UNK
     Dates: start: 20080522
  3. BACTRIM DS [Concomitant]
     Dosage: UNK UNK, BID
     Route: 048
     Dates: start: 20080627
  4. YASMIN [Suspect]
  5. DEPO-MEDROL [Concomitant]
     Dosage: 80 MG, UNK
     Route: 030
     Dates: start: 20080522
  6. TRIAMCINOLONE [Concomitant]
     Dosage: UNK UNK, BID
     Dates: start: 20080522
  7. BENADRYL [Concomitant]
     Indication: PRURITUS
     Dosage: UNK UNK, PRN
     Dates: start: 20080522
  8. KENALOG [Concomitant]
     Dosage: 40 MG, UNK
     Route: 030
     Dates: start: 20080522
  9. CALADRYL [Concomitant]
     Indication: PRURITUS
     Dosage: AS NEEDED
     Dates: start: 20080522

REACTIONS (2)
  - PULMONARY EMBOLISM [None]
  - DEEP VEIN THROMBOSIS [None]
